FAERS Safety Report 18205996 (Version 1)
Quarter: 2020Q3

REPORT INFORMATION
  Report Type: Spontaneous
  Country: US (occurrence: US)
  Receive Date: 20200827
  Receipt Date: 20200827
  Transmission Date: 20201103
  Serious: No
  Sender: FDA-Public Use
  Company Number: US-TEVA-2020-US-1815881

PATIENT
  Sex: Female

DRUGS (1)
  1. CILOSTAZOL TEVA [Suspect]
     Active Substance: CILOSTAZOL
     Indication: LIMB DISCOMFORT
     Dosage: 200 MILLIGRAM DAILY;
     Route: 065
     Dates: start: 2019

REACTIONS (3)
  - Pain in extremity [Unknown]
  - Drug ineffective [Unknown]
  - Hypoaesthesia [Unknown]
